FAERS Safety Report 17915491 (Version 1)
Quarter: 2020Q2

REPORT INFORMATION
  Report Type: Spontaneous
  Country: PT (occurrence: PT)
  Receive Date: 20200619
  Receipt Date: 20200619
  Transmission Date: 20200714
  Serious: Yes (Other)
  Sender: FDA-Public Use
  Company Number: PT-TEVA-2020-PT-1788205

PATIENT
  Age: 68 Year
  Sex: Female
  Weight: 68.7 kg

DRUGS (7)
  1. LETROZOLE. [Concomitant]
     Active Substance: LETROZOLE
     Route: 048
  2. CEFTRIAXONE. [Concomitant]
     Active Substance: CEFTRIAXONE
  3. AZITHROMYCIN ANHYDROUS. [Concomitant]
     Active Substance: AZITHROMYCIN ANHYDROUS
  4. HYDROXYCHLOROQUINE [Suspect]
     Active Substance: HYDROXYCHLOROQUINE
     Indication: COVID-19 PNEUMONIA
     Dosage: 200MG FROM 12 / 12H. 400 MG
     Route: 048
     Dates: start: 20200407, end: 20200413
  5. PARACETAMOL [Concomitant]
     Active Substance: ACETAMINOPHEN
  6. FOSINOPRIL [Concomitant]
     Active Substance: FOSINOPRIL
     Route: 048
  7. METOCLOPRAMIDE. [Concomitant]
     Active Substance: METOCLOPRAMIDE

REACTIONS (2)
  - Liver disorder [Unknown]
  - COVID-19 treatment [Recovered/Resolved]

NARRATIVE: CASE EVENT DATE: 20200407
